FAERS Safety Report 6391226-9 (Version None)
Quarter: 2009Q4

REPORT INFORMATION
  Report Type: 
  Country: None (occurrence: None)
  Receive Date: 20091007
  Receipt Date: 20090925
  Transmission Date: 20100525
  Serious: Yes (Other)
  Sender: FDA-Public Use
  Company Number: US-JNJFOC-20090908810

PATIENT
  Age: 3 Year
  Sex: Male
  Weight: 14.52 kg

DRUGS (4)
  1. TYLENOL (CAPLET) [Suspect]
     Route: 048
  2. TYLENOL (CAPLET) [Suspect]
     Indication: RHINORRHOEA
     Dosage: USING PRODUCT FOR 3 WEEKS
     Route: 048
  3. CLARITIN [Suspect]
     Indication: MULTIPLE ALLERGIES
     Dosage: FOR 5 DAYS
  4. BENADRYL [Suspect]
     Indication: MULTIPLE ALLERGIES
     Dosage: FOR 4 NIGHTS
     Route: 048

REACTIONS (4)
  - COUGH [None]
  - DRUG INEFFECTIVE [None]
  - RHINORRHOEA [None]
  - TRANSMISSION OF AN INFECTIOUS AGENT VIA A MEDICINAL PRODUCT [None]
